FAERS Safety Report 9466746 (Version 4)
Quarter: 2014Q1

REPORT INFORMATION
  Report Type: Spontaneous
  Country: US (occurrence: US)
  Receive Date: 20130820
  Receipt Date: 20140120
  Transmission Date: 20141002
  Serious: Yes (Hospitalization, Disabling, Other)
  Sender: FDA-Public Use
  Company Number: US-009507513-1308USA007535

PATIENT
  Sex: Female
  Weight: 73.47 kg

DRUGS (5)
  1. FOSAMAX [Suspect]
     Indication: OSTEOPOROSIS
     Dosage: 70 MG, UNK
     Route: 048
     Dates: start: 2009, end: 201011
  2. VITAMIN E [Concomitant]
     Dosage: UNK
     Dates: start: 1980
  3. VITAMINS (UNSPECIFIED) [Concomitant]
     Dosage: UNK
     Dates: start: 1980
  4. CALCIUM (UNSPECIFIED) [Concomitant]
     Dosage: 500 MG, UNK
     Dates: start: 1980
  5. AMLODIPINE BESYLATE [Concomitant]
     Indication: HYPERTENSION

REACTIONS (10)
  - Internal fixation of fracture [Unknown]
  - Haemorrhagic anaemia [Unknown]
  - Femur fracture [Unknown]
  - Low turnover osteopathy [Not Recovered/Not Resolved]
  - Atypical femur fracture [Recovered/Resolved]
  - Fall [Unknown]
  - Road traffic accident [Unknown]
  - Impaired healing [Unknown]
  - Osteoarthritis [Unknown]
  - Arthralgia [Unknown]
